FAERS Safety Report 20551919 (Version 4)
Quarter: 2022Q2

REPORT INFORMATION
  Report Type: Spontaneous
  Country: DE (occurrence: DE)
  Receive Date: 20220304
  Receipt Date: 20220604
  Transmission Date: 20220721
  Serious: Yes (Other)
  Sender: FDA-Public Use
  Company Number: DE-ROCHE-3001902

PATIENT
  Age: 58 Year
  Sex: Female
  Weight: 50.7 kg

DRUGS (5)
  1. TRASTUZUMAB [Suspect]
     Active Substance: TRASTUZUMAB
     Indication: Breast cancer
     Dosage: 406 MILLIGRAM/DATE OF LAST DOSE PRIOR TO AE: 14/DEC/2021
     Route: 041
     Dates: start: 20211123
  2. TRASTUZUMAB [Suspect]
     Active Substance: TRASTUZUMAB
     Dosage: 306 MILLIGRAM
     Route: 041
     Dates: start: 20211214
  3. PERTUZUMAB [Suspect]
     Active Substance: PERTUZUMAB
     Indication: Breast cancer
     Dosage: 840 MILLIGRAM/DATE OF LAST DOSE PRIOR TO AE: 14/DEC/2021
     Route: 065
     Dates: start: 20211123
  4. PACLITAXEL [Suspect]
     Active Substance: PACLITAXEL
     Indication: Breast cancer
     Dosage: 94 MILLIGRAM/DATE OF LAST DOSE PRIOR TO AE: 28/DEC/2021LAST DOSE PRIOR TO AE: 125 MG
     Route: 065
     Dates: start: 20211123
  5. LIDOCAINE [Concomitant]
     Active Substance: LIDOCAINE
     Dosage: 1 GRAM
     Route: 048
     Dates: start: 20220104

REACTIONS (7)
  - Polyneuropathy [Recovered/Resolved]
  - Leukopenia [Recovered/Resolved]
  - Neutropenia [Recovered/Resolved]
  - Mucosal inflammation [Recovered/Resolved]
  - Cough [Recovered/Resolved]
  - Diarrhoea [Not Recovered/Not Resolved]
  - Off label use [Unknown]

NARRATIVE: CASE EVENT DATE: 20211123
